FAERS Safety Report 5207542-X (Version None)
Quarter: 2006Q4

REPORT INFORMATION
  Report Type: 
  Country: None (occurrence: None)
  Receive Date: 20061030
  Receipt Date: 20060804
  Transmission Date: 20070319
  Serious: No
  Sender: FDA-Public Use
  Company Number: 256019

PATIENT
  Age: 17 Year
  Sex: Male
  Weight: 117 kg

DRUGS (2)
  1. LEVEMIR [Suspect]
     Indication: DIABETES MELLITUS NON-INSULIN-DEPENDENT
     Dosage: 50 IU,QD, SUBCUTANEOUS
     Route: 058
     Dates: start: 20060730
  2. NOVOLOG (INSULIN ASPART) SODIUM FOR INJECTION [Concomitant]

REACTIONS (1)
  - BLOOD GLUCOSE INCREASED [None]
